FAERS Safety Report 5221027-6 (Version None)
Quarter: 2007Q1

REPORT INFORMATION
  Report Type: 
  Country: None (occurrence: None)
  Receive Date: 20070126
  Receipt Date: 20070123
  Transmission Date: 20070707
  Serious: Yes (Disabling)
  Sender: FDA-Public Use
  Company Number: GB-MERCK-0701GBR00151

PATIENT
  Age: 42 Year
  Sex: Female

DRUGS (1)
  1. ALDOMET [Suspect]
     Indication: HYPERTENSION
     Route: 048
     Dates: start: 20060910, end: 20060930

REACTIONS (4)
  - DEPRESSED MOOD [None]
  - DEPRESSION [None]
  - LOSS OF LIBIDO [None]
  - TINNITUS [None]
